FAERS Safety Report 13040434 (Version 1)
Quarter: 2016Q4

REPORT INFORMATION
  Report Type: Spontaneous
  Country: US (occurrence: US)
  Receive Date: 20161219
  Receipt Date: 20161219
  Transmission Date: 20170207
  Serious: Yes (Other)
  Sender: FDA-Public Use
  Company Number: US-SA-2016SA153204

PATIENT
  Sex: Female

DRUGS (3)
  1. ENTRESTO [Concomitant]
     Active Substance: SACUBITRIL\VALSARTAN
  2. LOSARTAN. [Concomitant]
     Active Substance: LOSARTAN
  3. PLAVIX [Suspect]
     Active Substance: CLOPIDOGREL BISULFATE
     Route: 065
     Dates: start: 2016

REACTIONS (6)
  - Asthenia [Unknown]
  - Arterial occlusive disease [Unknown]
  - Drug ineffective [Unknown]
  - Fatigue [Unknown]
  - Myocardial infarction [Unknown]
  - Weight decreased [Unknown]

NARRATIVE: CASE EVENT DATE: 201604
